FAERS Safety Report 25178952 (Version 1)
Quarter: 2025Q2

REPORT INFORMATION
  Report Type: Spontaneous
  Country: US (occurrence: US)
  Receive Date: 20250409
  Receipt Date: 20250409
  Transmission Date: 20250716
  Serious: No
  Sender: SANOFI AVENTIS
  Company Number: US-SANOFI-02475298

PATIENT
  Age: 47 Year
  Sex: Female

DRUGS (1)
  1. TZIELD [Suspect]
     Active Substance: TEPLIZUMAB-MZWV
     Dates: start: 20250323

REACTIONS (1)
  - Rash [Unknown]

NARRATIVE: CASE EVENT DATE: 20250403
